FAERS Safety Report 8154527-X (Version None)
Quarter: 2012Q1

REPORT INFORMATION
  Report Type: 
  Country: None (occurrence: None)
  Receive Date: 20120221
  Receipt Date: 20120217
  Transmission Date: 20120608
  Serious: Yes (Other)
  Sender: FDA-Public Use
  Company Number: US-AMGEN-USASP2012010772

PATIENT
  Sex: Female

DRUGS (5)
  1. ARIMIDEX [Concomitant]
  2. OCUVITE                            /01053801/ [Concomitant]
  3. CALCIUM [Concomitant]
  4. ZETIA [Concomitant]
  5. PROLIA [Suspect]
     Indication: BONE LOSS
     Dates: start: 20120207

REACTIONS (4)
  - TOOTHACHE [None]
  - SWELLING FACE [None]
  - LIP SWELLING [None]
  - SINUSITIS [None]
